FAERS Safety Report 5705066-4 (Version None)
Quarter: 2008Q2

REPORT INFORMATION
  Report Type: 
  Country: None (occurrence: None)
  Receive Date: 20080410
  Receipt Date: 20080326
  Transmission Date: 20081010
  Serious: Yes (Death, Other)
  Sender: FDA-Public Use
  Company Number: MC200800159

PATIENT
  Age: 77 Year
  Sex: Male
  Weight: 90 kg

DRUGS (5)
  1. ANGIOMAX [Suspect]
     Indication: CORONARY ARTERY BYPASS
     Dosage: SEE IMAGE
     Route: 042
     Dates: start: 20080301, end: 20080301
  2. ANGIOMAX [Suspect]
     Indication: CORONARY ARTERY BYPASS
     Dosage: SEE IMAGE
     Route: 042
     Dates: start: 20080301, end: 20080301
  3. ANGIOMAX [Suspect]
     Indication: CORONARY ARTERY BYPASS
     Dosage: SEE IMAGE
     Route: 042
     Dates: start: 20080301, end: 20080301
  4. ANGIOMAX [Suspect]
     Indication: CORONARY ARTERY BYPASS
     Dosage: SEE IMAGE
     Route: 042
     Dates: start: 20080301, end: 20080301
  5. ANGIOMAX [Suspect]
     Indication: CORONARY ARTERY BYPASS
     Dosage: SEE IMAGE
     Route: 042
     Dates: start: 20080301, end: 20080301

REACTIONS (7)
  - CARDIAC FAILURE CONGESTIVE [None]
  - COAGULATION TIME PROLONGED [None]
  - ENDOCARDITIS [None]
  - HAEMORRHAGE [None]
  - HYPOTENSION [None]
  - OVERDOSE [None]
  - VASODILATATION [None]
